FAERS Safety Report 7799178-1 (Version None)
Quarter: 2011Q4

REPORT INFORMATION
  Report Type: 
  Country: None (occurrence: None)
  Receive Date: 20111006
  Receipt Date: 20111004
  Transmission Date: 20120403
  Serious: Yes (Other)
  Sender: FDA-Public Use
  Company Number: ES-PFIZER INC-2011236172

PATIENT
  Age: 70 Year
  Sex: Male

DRUGS (1)
  1. INSPRA [Suspect]
     Dosage: UNK

REACTIONS (1)
  - CONVULSION [None]
